FAERS Safety Report 19709853 (Version 2)
Quarter: 2021Q3

REPORT INFORMATION
  Report Type: Spontaneous
  Country: SE (occurrence: SE)
  Receive Date: 20210817
  Receipt Date: 20210830
  Transmission Date: 20211014
  Serious: Yes (Other)
  Sender: FDA-Public Use
  Company Number: ALC2021SE004636

PATIENT

DRUGS (1)
  1. VISCOTEARS [Suspect]
     Active Substance: CARBOMER
     Indication: PRODUCT USED FOR UNKNOWN INDICATION
     Dosage: 2 MG/G EYE GEL, 10 GM
     Route: 047

REACTIONS (2)
  - Eye haemorrhage [Not Recovered/Not Resolved]
  - Wrong technique in product usage process [Unknown]
